FAERS Safety Report 12854708 (Version 2)
Quarter: 2016Q4

REPORT INFORMATION
  Report Type: Report from Study
  Country: None (occurrence: GB)
  Receive Date: 20161017
  Receipt Date: 20161019
  Transmission Date: 20170207
  Serious: Yes (Other)
  Sender: FDA-Public Use
  Company Number: GB-ABBVIE-16K-167-1750518-00

PATIENT
  Sex: Female

DRUGS (1)
  1. HUMIRA [Suspect]
     Active Substance: ADALIMUMAB
     Indication: PRODUCT USED FOR UNKNOWN INDICATION
     Route: 058

REACTIONS (4)
  - Foetal death [Unknown]
  - Abortion spontaneous incomplete [Unknown]
  - Exposure during pregnancy [Unknown]
  - Evacuation of retained products of conception [Unknown]

NARRATIVE: CASE EVENT DATE: 201605
